FAERS Safety Report 10920184 (Version 4)
Quarter: 2015Q3

REPORT INFORMATION
  Report Type: Spontaneous
  Country: IT (occurrence: IT)
  Receive Date: 20150317
  Receipt Date: 20150703
  Transmission Date: 20151125
  Serious: Yes (Hospitalization, Other)
  Sender: FDA-Public Use
  Company Number: IT-ROCHE-1550624

PATIENT
  Age: 29 Year
  Sex: Female

DRUGS (8)
  1. TOLEP [Suspect]
     Active Substance: OXCARBAZEPINE
     Route: 065
  2. NEURONTIN [Suspect]
     Active Substance: GABAPENTIN
     Route: 048
  3. RIVOTRIL [Suspect]
     Active Substance: CLONAZEPAM
     Indication: PRODUCT USED FOR UNKNOWN INDICATION
     Dosage: 2 MG TABLETS 20 TABLETS
     Route: 048
     Dates: start: 20150225, end: 20150225
  4. RIVOTRIL [Suspect]
     Active Substance: CLONAZEPAM
     Route: 048
  5. NEURONTIN [Suspect]
     Active Substance: GABAPENTIN
     Indication: PRODUCT USED FOR UNKNOWN INDICATION
     Route: 048
     Dates: start: 20150225, end: 20150225
  6. VENLAFAXINE [Suspect]
     Active Substance: VENLAFAXINE HYDROCHLORIDE
     Indication: BIPOLAR DISORDER
     Route: 048
     Dates: start: 20150225, end: 20150225
  7. VENLAFAXINE [Suspect]
     Active Substance: VENLAFAXINE HYDROCHLORIDE
     Route: 065
  8. TOLEP [Suspect]
     Active Substance: OXCARBAZEPINE
     Indication: BIPOLAR DISORDER
     Dosage: 600 MG TABLETS 50 SCORED TABLETS
     Route: 048
     Dates: start: 20150225, end: 20150225

REACTIONS (3)
  - Intentional self-injury [Unknown]
  - Breath sounds abnormal [Recovered/Resolved]
  - Drug abuse [Unknown]

NARRATIVE: CASE EVENT DATE: 20150225
